FAERS Safety Report 5633257-X (Version None)
Quarter: 2008Q1

REPORT INFORMATION
  Report Type: 
  Country: None (occurrence: None)
  Receive Date: 20080221
  Receipt Date: 20080213
  Transmission Date: 20080703
  Serious: Yes (Life-Threatening, Hospitalization)
  Sender: FDA-Public Use
  Company Number: US-MERCK-0802USA03140

PATIENT
  Age: 59 Year
  Sex: Female

DRUGS (3)
  1. JANUVIA [Suspect]
     Route: 048
     Dates: start: 20070723
  2. MORPHINE [Concomitant]
     Route: 042
  3. LASIX [Suspect]
     Route: 065

REACTIONS (6)
  - CARDIAC FAILURE [None]
  - CONSTIPATION [None]
  - FLATULENCE [None]
  - PANCREATITIS [None]
  - RENAL FAILURE [None]
  - TRANSIENT ISCHAEMIC ATTACK [None]
